FAERS Safety Report 9206155 (Version 2)
Quarter: 2014Q1

REPORT INFORMATION
  Report Type: Spontaneous
  Country: US (occurrence: US)
  Receive Date: 20130403
  Receipt Date: 20140103
  Transmission Date: 20141002
  Serious: Yes (Other)
  Sender: FDA-Public Use
  Company Number: US-BAYER-2013-040489

PATIENT
  Age: 31 Year
  Sex: Female

DRUGS (8)
  1. YAZ [Suspect]
     Dosage: UNK
     Dates: start: 2007, end: 2010
  2. YASMIN [Suspect]
     Dosage: UNK
     Dates: start: 2007, end: 2010
  3. OCELLA [Suspect]
     Dosage: UNK
     Dates: start: 2007, end: 2010
  4. COPAXONE [Concomitant]
     Dosage: 20 MG/ML, UNK
     Dates: start: 20100518, end: 20130812
  5. METFORMIN [Concomitant]
  6. ADVIL [Concomitant]
  7. NEXIUM [Concomitant]
  8. MULTIVITAMIN [Concomitant]

REACTIONS (9)
  - Cholelithiasis [None]
  - Cholecystitis chronic [None]
  - Abdominal pain [None]
  - Injury [None]
  - Emotional distress [None]
  - General physical health deterioration [None]
  - Anxiety [None]
  - Pain [None]
  - Pain [None]
